FAERS Safety Report 18777737 (Version 3)
Quarter: 2021Q4

REPORT INFORMATION
  Report Type: Spontaneous
  Country: US (occurrence: US)
  Receive Date: 20210122
  Receipt Date: 20211015
  Transmission Date: 20220303
  Serious: No
  Sender: FDA-Public Use
  Company Number: US-PFIZER INC-2019409646

PATIENT
  Age: 67 Year
  Sex: Female
  Weight: 72.57 kg

DRUGS (3)
  1. CHANTIX [Suspect]
     Active Substance: VARENICLINE TARTRATE
     Indication: Smoking cessation therapy
     Dosage: UNK (STARTER PACK IN 2010 OR 2011)
  2. CHANTIX [Suspect]
     Active Substance: VARENICLINE TARTRATE
     Dosage: UNK, 2X/DAY
  3. CHANTIX [Suspect]
     Active Substance: VARENICLINE TARTRATE
     Dosage: UNK
     Dates: start: 2021

REACTIONS (4)
  - Abnormal dreams [Unknown]
  - Nausea [Unknown]
  - Vomiting [Unknown]
  - Wrong technique in product usage process [Unknown]
